FAERS Safety Report 14573124 (Version 15)
Quarter: 2019Q2

REPORT INFORMATION
  Report Type: Report from Study
  Country: US (occurrence: US)
  Receive Date: 20180226
  Receipt Date: 20190429
  Transmission Date: 20190711
  Serious: Yes (Life-Threatening, Hospitalization, Other)
  Sender: FDA-Public Use
  Company Number: US-TESARO, INC-US-2018TSO00434

PATIENT
  Age: 80 Year
  Sex: Female
  Weight: 70.75 kg

DRUGS (9)
  1. ZEJULA [Suspect]
     Active Substance: NIRAPARIB
     Dosage: 200 MG, QHS
     Route: 048
     Dates: start: 201809, end: 201904
  2. ZEJULA [Suspect]
     Active Substance: NIRAPARIB
     Dosage: 300MG ALT 200 MG
     Route: 048
     Dates: start: 2018
  3. ZEJULA [Suspect]
     Active Substance: NIRAPARIB
     Dosage: 300 MG, QD
     Route: 048
     Dates: start: 20180814
  4. METOPROLOL. [Concomitant]
     Active Substance: METOPROLOL
     Indication: PRODUCT USED FOR UNKNOWN INDICATION
  5. ZEJULA [Suspect]
     Active Substance: NIRAPARIB
     Indication: OVARIAN CANCER
     Dosage: 300 MG, QD
     Route: 048
     Dates: start: 20180118, end: 20180118
  6. ZEJULA [Suspect]
     Active Substance: NIRAPARIB
     Dosage: 300 MG, QD
     Route: 048
     Dates: start: 201803, end: 2018
  7. ZEJULA [Suspect]
     Active Substance: NIRAPARIB
     Dosage: 200 MG, QD
     Route: 048
     Dates: start: 20180130, end: 201803
  8. ZEJULA [Suspect]
     Active Substance: NIRAPARIB
     Dosage: 200 MG, QD
     Route: 048
     Dates: start: 20180501
  9. ZEJULA [Suspect]
     Active Substance: NIRAPARIB
     Dosage: 300 MG, QD
     Route: 048
     Dates: start: 20180119, end: 20180129

REACTIONS (37)
  - Haemoglobin decreased [Not Recovered/Not Resolved]
  - Skin disorder [Recovering/Resolving]
  - Feeling abnormal [Recovering/Resolving]
  - Headache [Unknown]
  - Dyspnoea [Unknown]
  - Squamous cell carcinoma [Not Recovered/Not Resolved]
  - Hair texture abnormal [Not Recovered/Not Resolved]
  - Blood pressure increased [Not Recovered/Not Resolved]
  - Diabetic coma [Unknown]
  - Pollakiuria [Unknown]
  - Muscular weakness [Unknown]
  - Oropharyngeal pain [Not Recovered/Not Resolved]
  - Emotional distress [Unknown]
  - Fatigue [Unknown]
  - Dyspepsia [Recovering/Resolving]
  - Heart rate abnormal [Not Recovered/Not Resolved]
  - Heart rate increased [Not Recovered/Not Resolved]
  - Nausea [Recovering/Resolving]
  - Cough [Not Recovered/Not Resolved]
  - Depressed mood [Unknown]
  - Blood count abnormal [Recovered/Resolved]
  - Choking [Recovering/Resolving]
  - Asthenia [Not Recovered/Not Resolved]
  - Vomiting [Unknown]
  - Blood glucose increased [Unknown]
  - Blood pressure fluctuation [Not Recovered/Not Resolved]
  - Somnolence [Not Recovered/Not Resolved]
  - Inappropriate schedule of product administration [Unknown]
  - Renal impairment [Not Recovered/Not Resolved]
  - Eating disorder [Recovering/Resolving]
  - Fungal skin infection [Not Recovered/Not Resolved]
  - Oedema peripheral [Not Recovered/Not Resolved]
  - Restlessness [Recovering/Resolving]
  - Respiratory disorder [Not Recovered/Not Resolved]
  - Abdominal distension [Not Recovered/Not Resolved]
  - Blood creatinine increased [Not Recovered/Not Resolved]
  - Dizziness [Unknown]

NARRATIVE: CASE EVENT DATE: 2018
